FAERS Safety Report 5866217-4 (Version None)
Quarter: 2008Q3

REPORT INFORMATION
  Report Type: 
  Country: None (occurrence: None)
  Receive Date: 20080829
  Receipt Date: 20080818
  Transmission Date: 20090109
  Serious: Yes (Hospitalization)
  Sender: FDA-Public Use
  Company Number: FR-PFIZER INC-2008069741

PATIENT
  Sex: Male

DRUGS (9)
  1. NEURONTIN [Suspect]
     Indication: NEURALGIA
     Route: 048
     Dates: start: 20070701, end: 20080724
  2. ACETAMINOPHEN AND CODEINE PHOSPHATE [Suspect]
     Route: 048
     Dates: start: 20080722, end: 20080724
  3. LEVOTHYROX [Concomitant]
  4. PROSCAR [Concomitant]
  5. NOVONORM [Concomitant]
  6. NEXIUM [Concomitant]
  7. NEBIVOLOL HCL [Concomitant]
  8. PREVISCAN [Concomitant]
  9. TRANSIPEG [Concomitant]

REACTIONS (3)
  - DEPRESSED LEVEL OF CONSCIOUSNESS [None]
  - ENCEPHALITIS TOXIC [None]
  - MYOCLONUS [None]
